FAERS Safety Report 6242024-8 (Version None)
Quarter: 2009Q2

REPORT INFORMATION
  Report Type: 
  Country: None (occurrence: None)
  Receive Date: 20090623
  Receipt Date: 20090609
  Transmission Date: 20091009
  Serious: Yes (Hospitalization)
  Sender: FDA-Public Use
  Company Number: PHHY2009JP13658

PATIENT
  Sex: Female
  Weight: 42 kg

DRUGS (8)
  1. DIOVAN [Suspect]
     Indication: HYPERTENSION
     Dosage: 80 MG DAILY
     Route: 048
     Dates: start: 20031020, end: 20090326
  2. ZYLORIC [Concomitant]
     Indication: HYPERURICAEMIA
     Dosage: 100 MG/DAY
     Route: 048
     Dates: start: 20061206
  3. ADALAT [Concomitant]
     Indication: HYPERTENSION
     Dosage: 40 MG/DAY
     Route: 048
     Dates: start: 20020930, end: 20090321
  4. LIPOVAS [Concomitant]
     Dosage: 5 MG/DAY
     Route: 048
     Dates: start: 20020930
  5. NORVASC [Concomitant]
     Indication: HYPERTENSION
     Dosage: 1DF
     Route: 048
     Dates: start: 20070821
  6. MAGMITT [Concomitant]
     Indication: CONSTIPATION
     Dosage: 990 MG/DAY
     Route: 048
     Dates: start: 20051209, end: 20090321
  7. ALOSENN [Concomitant]
     Indication: CONSTIPATION
     Dosage: 0.5 MG
     Route: 048
     Dates: start: 20061206, end: 20090321
  8. LASIX [Concomitant]
     Indication: RENAL IMPAIRMENT
     Dosage: 40 MG/DAY
     Route: 048
     Dates: start: 20070326

REACTIONS (9)
  - ATRIOVENTRICULAR BLOCK [None]
  - BLOOD CREATININE INCREASED [None]
  - COLON OPERATION [None]
  - HYPERKALAEMIA [None]
  - MALAISE [None]
  - PRESYNCOPE [None]
  - RENAL IMPAIRMENT [None]
  - SINUS ARREST [None]
  - SINUS BRADYCARDIA [None]
